FAERS Safety Report 6852830-4 (Version None)
Quarter: 2010Q3

REPORT INFORMATION
  Report Type: 
  Country: None (occurrence: None)
  Receive Date: 20100717
  Receipt Date: 20071120
  Transmission Date: 20110219
  Serious: No
  Sender: FDA-Public Use
  Company Number: US-PFIZER INC-2007100386

PATIENT
  Sex: Female
  Weight: 73.6 kg

DRUGS (8)
  1. CHANTIX [Suspect]
     Indication: SMOKING CESSATION THERAPY
     Dates: start: 20071109
  2. ADVAIR DISKUS 100/50 [Concomitant]
  3. MONTELUKAST SODIUM [Concomitant]
  4. ZYRTEC [Concomitant]
  5. ESTRACE [Concomitant]
  6. FLONASE [Concomitant]
  7. ALBUTEROL [Concomitant]
  8. BIAXIN [Concomitant]
     Dates: start: 20071106, end: 20071115

REACTIONS (1)
  - ORAL PAIN [None]
